FAERS Safety Report 6266461-0 (Version None)
Quarter: 2009Q3

REPORT INFORMATION
  Report Type: 
  Country: None (occurrence: None)
  Receive Date: 20090710
  Receipt Date: 20090709
  Transmission Date: 20100115
  Serious: Yes (Other)
  Sender: FDA-Public Use
  Company Number: GRT 2009-12098

PATIENT
  Sex: Female
  Weight: 40 kg

DRUGS (14)
  1. LIDOCAINE [Suspect]
     Indication: PAIN
  2. AMITRIPTYLINE [Concomitant]
  3. CLOPIDOGREL [Concomitant]
  4. CODEINE PHOSPHATE [Concomitant]
  5. PARACETAMOL [Concomitant]
  6. DOMPERIDONE [Concomitant]
  7. ISOSOEBIDE DINITRATE [Concomitant]
  8. MEBEVERINE HYDROCHLORIDE [Concomitant]
  9. NICORANDIL [Concomitant]
  10. OMEPRAZOLE [Concomitant]
  11. OXAZEPAM [Concomitant]
  12. MENTHA X PIPERITA OIL [Concomitant]
  13. RAMIPRIL [Concomitant]
  14. ZOPICLONE [Concomitant]

REACTIONS (3)
  - BRADYCARDIA [None]
  - ELECTROCARDIOGRAM ABNORMAL [None]
  - ELECTROCARDIOGRAM CHANGE [None]
